FAERS Safety Report 21649938 (Version 2)
Quarter: 2022Q4

REPORT INFORMATION
  Report Type: Other
  Country: US (occurrence: None)
  Receive Date: 20221128
  Receipt Date: 20221227
  Transmission Date: 20230112
  Serious: Yes (Other)
  Sender: FDA-Public Use
  Company Number: US-ROCHE-3176674

PATIENT
  Sex: Male

DRUGS (1)
  1. VALCYTE [Suspect]
     Active Substance: VALGANCICLOVIR HYDROCHLORIDE
     Indication: Cytomegalovirus infection
     Dosage: 1 TABLET EVERY OTHER DAY
     Route: 048

REACTIONS (3)
  - Off label use [Unknown]
  - Intentional product misuse [Unknown]
  - Cerebrovascular accident [Unknown]
